FAERS Safety Report 9204160 (Version 2)
Quarter: 2013Q2

REPORT INFORMATION
  Report Type: Report from Study
  Country: CA (occurrence: CA)
  Receive Date: 20130402
  Receipt Date: 20130423
  Transmission Date: 20140414
  Serious: Yes (Death, Hospitalization, Other)
  Sender: FDA-Public Use
  Company Number: CA-ABBOTT-13P-028-1070179-00

PATIENT
  Age: 83 Year
  Sex: Male

DRUGS (3)
  1. LUPRON DEPOT [Suspect]
     Indication: PROSTATE CANCER
     Route: 030
     Dates: start: 20120925, end: 20121218
  2. HYDROMORPHINE [Concomitant]
     Indication: PRODUCT USED FOR UNKNOWN INDICATION
     Route: 058
     Dates: start: 20130202
  3. HYDROMORPHINE [Concomitant]
     Dosage: AS NEEDED
     Dates: start: 20130202

REACTIONS (8)
  - Condition aggravated [Fatal]
  - General physical health deterioration [Fatal]
  - Pain [Unknown]
  - Bundle branch block right [Unknown]
  - Decreased appetite [Unknown]
  - Hypophagia [Unknown]
  - Sinus tachycardia [Unknown]
  - Electrocardiogram abnormal [Unknown]
